FAERS Safety Report 6601174-4 (Version None)
Quarter: 2010Q1

REPORT INFORMATION
  Report Type: 
  Country: None (occurrence: None)
  Receive Date: 20100217
  Receipt Date: 20100208
  Transmission Date: 20100710
  Serious: Yes (Life-Threatening, Hospitalization)
  Sender: FDA-Public Use
  Company Number: TCI2010A00319

PATIENT
  Age: 61 Year
  Sex: Male

DRUGS (4)
  1. ACTOS [Suspect]
     Indication: TYPE 2 DIABETES MELLITUS
     Dosage: 30 MG (30 MG, 1 IN 1 D) PER ORAL
     Route: 048
     Dates: start: 20090225, end: 20100122
  2. MEDET (METFORMIN HYDROCHLORIDE) [Concomitant]
  3. GLIMICRON (GLICLAZIDE) [Concomitant]
  4. SEIBULE (MIGLITOL) [Concomitant]

REACTIONS (5)
  - CARDIAC FAILURE [None]
  - CARDIAC TAMPONADE [None]
  - LUNG NEOPLASM MALIGNANT [None]
  - PERICARDIAL EFFUSION [None]
  - TUMOUR INVASION [None]
